FAERS Safety Report 5959367-5 (Version None)
Quarter: 2008Q4

REPORT INFORMATION
  Report Type: 
  Country: None (occurrence: None)
  Receive Date: 20081119
  Receipt Date: 20081119
  Transmission Date: 20090506
  Serious: No
  Sender: FDA-Public Use
  Company Number: None

PATIENT
  Sex: Male
  Weight: 64.1 kg

DRUGS (1)
  1. LEVOFLOXACIN [Suspect]
     Indication: FEBRILE NEUTROPENIA
     Dosage: 750MG DAILY PO
     Route: 048
     Dates: start: 20080501, end: 20080503

REACTIONS (4)
  - CONFUSIONAL STATE [None]
  - DISORIENTATION [None]
  - INCONTINENCE [None]
  - REFUSAL OF TREATMENT BY PATIENT [None]
